FAERS Safety Report 4293490-9 (Version None)
Quarter: 2004Q1

REPORT INFORMATION
  Report Type: 
  Country: None (occurrence: None)
  Receive Date: 20040126
  Receipt Date: 20030821
  Transmission Date: 20041129
  Serious: No
  Sender: FDA-Public Use
  Company Number: USA030844821

PATIENT
  Age: 54 Year
  Sex: Female

DRUGS (3)
  1. FORTEO [Suspect]
     Dates: start: 20030701, end: 20030101
  2. MINOCIN [Concomitant]
  3. STANDARD VITAMINS [Concomitant]

REACTIONS (2)
  - NAIL DISCOLOURATION [None]
  - SKIN DISCOLOURATION [None]
